FAERS Safety Report 15261187 (Version 1)
Quarter: 2018Q3

REPORT INFORMATION
  Report Type: Spontaneous
  Country: TW (occurrence: TW)
  Receive Date: 20180809
  Receipt Date: 20180809
  Transmission Date: 20181010
  Serious: Yes (Other)
  Sender: FDA-Public Use
  Company Number: TW-PFIZER INC-2018316334

PATIENT
  Age: 36 Year
  Sex: Male

DRUGS (1)
  1. KETAMINE HCL [Suspect]
     Active Substance: KETAMINE HYDROCHLORIDE
     Dosage: UNK (FOR 6 TO 7 YEARS (AT A FREQUENCY OF 2?3 TIMES PER WEEK, BY NASAL INHALATION)
     Route: 045

REACTIONS (3)
  - Cystitis [Recovering/Resolving]
  - Incorrect route of drug administration [Recovered/Resolved]
  - Drug abuse [Recovered/Resolved]
